FAERS Safety Report 13792638 (Version 3)
Quarter: 2017Q3

REPORT INFORMATION
  Report Type: Spontaneous
  Country: IT (occurrence: IT)
  Receive Date: 20170726
  Receipt Date: 20170818
  Transmission Date: 20171127
  Serious: Yes (Hospitalization)
  Sender: FDA-Public Use
  Company Number: IT-PFIZER INC-2017311117

PATIENT
  Age: 30 Year
  Sex: Female

DRUGS (7)
  1. IMMUNOGLOBULIN /07494701/ [Concomitant]
     Active Substance: IMMUNE GLOBULIN NOS
     Dosage: 25 G, DAILY EVERY 3 WEEKS
     Route: 042
     Dates: start: 201705, end: 201706
  2. TEGRETOL [Suspect]
     Active Substance: CARBAMAZEPINE
     Indication: MULTIFOCAL MOTOR NEUROPATHY
     Dosage: 200 MG, 2X/DAY
     Dates: start: 2012
  3. VITAMIN B12 + FOLIC ACID [Concomitant]
     Dosage: UNK
  4. VITAMIN D [Concomitant]
     Active Substance: CHOLECALCIFEROL
     Dosage: UNK
  5. TEGRETOL [Suspect]
     Active Substance: CARBAMAZEPINE
     Indication: MOOD ALTERED
  6. DULOXETINE. [Suspect]
     Active Substance: DULOXETINE
     Dosage: 60 MG, DAILY
  7. LYRICA [Suspect]
     Active Substance: PREGABALIN
     Indication: MULTIFOCAL MOTOR NEUROPATHY
     Dosage: 150 MG, 2X/DAY

REACTIONS (9)
  - Photopsia [Not Recovered/Not Resolved]
  - Asthenopia [Not Recovered/Not Resolved]
  - Paraesthesia [Not Recovered/Not Resolved]
  - Sciatic nerve injury [Not Recovered/Not Resolved]
  - Visual impairment [Not Recovered/Not Resolved]
  - Diplopia [Not Recovered/Not Resolved]
  - Vision blurred [Not Recovered/Not Resolved]
  - Hemianopia [Not Recovered/Not Resolved]
  - Visual field defect [Not Recovered/Not Resolved]

NARRATIVE: CASE EVENT DATE: 201701
